FAERS Safety Report 8935941 (Version 1)
Quarter: 2012Q4

REPORT INFORMATION
  Report Type: 
  Country: US (occurrence: US)
  Receive Date: 20121130
  Receipt Date: 20121130
  Transmission Date: 20130627
  Serious: No
  Sender: FDA-Public Use
  Company Number: US-ABBOTT-12P-163-0993518-00

PATIENT
  Age: 60 Year
  Sex: Male
  Weight: 106.69 kg

DRUGS (4)
  1. ANDROGEL [Suspect]
     Indication: BLOOD TESTOSTERONE DECREASED
     Dosage: 4 pumps daily
     Dates: start: 2012
  2. ANDROGEL [Suspect]
     Indication: BLOOD TESTOSTERONE DECREASED
     Dates: start: 2012, end: 2012
  3. UNKNOWN MEDICATION [Concomitant]
     Indication: DEPRESSION
  4. UNKNOWN INDICATION [Concomitant]
     Indication: HYPERTENSION

REACTIONS (3)
  - Myalgia [Unknown]
  - Pain [Unknown]
  - Drug ineffective [Unknown]
